FAERS Safety Report 26210049 (Version 1)
Quarter: 2025Q4

REPORT INFORMATION
  Report Type: Spontaneous
  Country: CA (occurrence: CA)
  Receive Date: 20251229
  Receipt Date: 20251229
  Transmission Date: 20260118
  Serious: Yes (Other)
  Sender: Hugel Aesthetics
  Company Number: CA-Hugel Aesthetics-2191528

PATIENT
  Age: 56 Year
  Sex: Female

DRUGS (1)
  1. LETYBO [Suspect]
     Active Substance: LETIBOTULINUMTOXINA-WLBG
     Indication: Skin cosmetic procedure

REACTIONS (2)
  - Skin lesion [Recovered/Resolved]
  - Therapy non-responder [Recovered/Resolved]
